FAERS Safety Report 6437413-2 (Version None)
Quarter: 2009Q4

REPORT INFORMATION
  Report Type: 
  Country: None (occurrence: None)
  Receive Date: 20091112
  Receipt Date: 20091104
  Transmission Date: 20100525
  Serious: Yes (Other)
  Sender: FDA-Public Use
  Company Number: US-ELI_LILLY_AND_COMPANY-US200911001095

PATIENT
  Age: 85 Year
  Sex: Male

DRUGS (6)
  1. XIGRIS [Suspect]
     Indication: SEPSIS
     Route: 042
     Dates: start: 20091102
  2. ZYVOX [Concomitant]
  3. DORIPENEM [Concomitant]
  4. FENTANYL [Concomitant]
  5. LEVOPHED [Concomitant]
  6. SOLU-CORTEF [Concomitant]

REACTIONS (1)
  - BLOOD GLUCOSE ABNORMAL [None]
